FAERS Safety Report 5731286-9 (Version None)
Quarter: 2008Q2

REPORT INFORMATION
  Report Type: 
  Country: None (occurrence: None)
  Receive Date: 20080505
  Receipt Date: 20080421
  Transmission Date: 20081010
  Serious: Yes (Other)
  Sender: FDA-Public Use
  Company Number: 2008S1006676

PATIENT
  Age: 46 Year
  Sex: Male

DRUGS (3)
  1. AZATHIOPRINE [Suspect]
     Indication: ARTHRITIS
     Dosage: 150 MG; DAILY
  2. AZATHIOPRINE [Suspect]
     Indication: UVEITIS
     Dosage: 150 MG; DAILY
  3. METHYLPREDNISOLONE [Concomitant]

REACTIONS (1)
  - DIFFUSE LARGE B-CELL LYMPHOMA [None]
